FAERS Safety Report 6476192-X (Version None)
Quarter: 2009Q4

REPORT INFORMATION
  Report Type: 
  Country: None (occurrence: None)
  Receive Date: 20091206
  Receipt Date: 20090611
  Transmission Date: 20100525
  Serious: No
  Sender: FDA-Public Use
  Company Number: US-ALLERGAN-0908111US

PATIENT
  Sex: Female

DRUGS (4)
  1. ELESTAT [Suspect]
     Indication: DRUG USE FOR UNKNOWN INDICATION
  2. AUGMENTIN [Concomitant]
     Dosage: 500 MG, UNK
  3. LORTAB [Concomitant]
  4. RESTORIL [Concomitant]

REACTIONS (1)
  - EYE DISCHARGE [None]
